FAERS Safety Report 16050906 (Version 3)
Quarter: 2019Q3

REPORT INFORMATION
  Report Type: Spontaneous
  Country: US (occurrence: US)
  Receive Date: 20190308
  Receipt Date: 20190701
  Transmission Date: 20191004
  Serious: No
  Sender: FDA-Public Use
  Company Number: US-PFIZER INC-2019099150

PATIENT
  Age: 53 Year
  Sex: Female

DRUGS (1)
  1. XELJANZ [Suspect]
     Active Substance: TOFACITINIB CITRATE
     Dosage: 5 MG, 2X/DAY
     Dates: start: 20190213

REACTIONS (6)
  - Productive cough [Unknown]
  - Epistaxis [Unknown]
  - Oral disorder [Unknown]
  - Nasal congestion [Unknown]
  - Headache [Unknown]
  - Constipation [Unknown]

NARRATIVE: CASE EVENT DATE: 20190220
